FAERS Safety Report 6673485-8 (Version None)
Quarter: 2010Q1

REPORT INFORMATION
  Report Type: 
  Country: None (occurrence: None)
  Receive Date: 20100329
  Receipt Date: 20091104
  Transmission Date: 20100710
  Serious: Yes (Other)
  Sender: FDA-Public Use
  Company Number: 2009275076

PATIENT
  Age: 53 Year
  Sex: Female
  Weight: 84 kg

DRUGS (4)
  1. GEODON [Suspect]
     Dosage: FREQUENCY:  2X/DAY, ORAL
     Route: 048
     Dates: start: 20090909, end: 20090914
  2. LYRICA [Concomitant]
  3. OMEPRAZOLE [Concomitant]
  4. PROZAC [Concomitant]

REACTIONS (1)
  - NEUROLEPTIC MALIGNANT SYNDROME [None]
